FAERS Safety Report 7765559 (Version 2)
Quarter: 2013Q1

REPORT INFORMATION
  Report Type: Spontaneous
  Country: FR (occurrence: None)
  Receive Date: 20101206
  Receipt Date: 20130215
  Transmission Date: 20140127
  Serious: Yes (Death)
  Sender: FDA-Public Use
  Company Number: 012054

PATIENT
  Age: 53 Year
  Sex: Female
  Weight: 58 kg

DRUGS (3)
  1. BUSULFEX [Suspect]
     Dosage: 184 MG, DAILY DOSE, INTRAVENOUS
     Route: 042
     Dates: start: 20100919, end: 20100920
  2. FLUDARABINE (FLUDARABINE) [Concomitant]
  3. ATG-FRESENIUS (ANTIHYMOCYTE IMMUNOGLOBULIN) [Concomitant]

REACTIONS (3)
  - MULTI-ORGAN FAILURE [None]
  - TOXICITY TO VARIOUS AGENTS [None]
  - INFECTION [None]
